FAERS Safety Report 7509424-7 (Version None)
Quarter: 2011Q2

REPORT INFORMATION
  Report Type: 
  Country: None (occurrence: None)
  Receive Date: 20110527
  Receipt Date: 20110519
  Transmission Date: 20111010
  Serious: Yes (Other)
  Sender: FDA-Public Use
  Company Number: US-ROCHE-779128

PATIENT

DRUGS (1)
  1. AVASTIN [Suspect]
     Dosage: ROUTE: EYE
     Route: 065

REACTIONS (1)
  - CEREBROVASCULAR ACCIDENT [None]
